FAERS Safety Report 7185390-1 (Version None)
Quarter: 2010Q4

REPORT INFORMATION
  Report Type: 
  Country: None (occurrence: None)
  Receive Date: 20101222
  Receipt Date: 20100603
  Transmission Date: 20110411
  Serious: No
  Sender: FDA-Public Use
  Company Number: US-AMGEN-KDL416080

PATIENT

DRUGS (15)
  1. ENBREL [Suspect]
     Indication: PRODUCT USED FOR UNKNOWN INDICATION
     Dosage: 50 MG, QWK
     Route: 058
  2. DEXTROPROPOXYPHENE NAPSILATE W/ ACETAMINOPHEN [Concomitant]
     Dosage: UNK UNK, UNK
  3. CARVEDILOL [Concomitant]
     Dosage: 25 MG, UNK
  4. METHOTREXATE [Concomitant]
     Dosage: 2.5 MG, UNK
  5. VALSARTAN [Concomitant]
     Dosage: 80 MG, UNK
  6. ACETYLSALICYLIC ACID [Concomitant]
     Dosage: 81 MG, UNK
  7. FOLIC ACID [Concomitant]
     Dosage: 1 MG, UNK
  8. DUTASTERIDE [Concomitant]
     Dosage: .5 MG, UNK
  9. ESOMEPRAZOLE MAGNESIUM [Concomitant]
     Dosage: 40 MG, UNK
  10. TRAZODONE HCL [Concomitant]
     Dosage: 150 MG, UNK
  11. SULFASALAZINE [Concomitant]
     Dosage: 500 MG, UNK
  12. LIDODERM [Concomitant]
     Dosage: 5 %, UNK
  13. ERGOCALCIFEROL [Concomitant]
     Dosage: 400 IU, UNK
  14. CALCIUM [Concomitant]
     Dosage: UNK UNK, UNK
  15. RANOLAZINE [Concomitant]
     Dosage: 500 MG, UNK

REACTIONS (2)
  - CHILLS [None]
  - GASTROENTERITIS VIRAL [None]
